FAERS Safety Report 8193724-4 (Version None)
Quarter: 2012Q1

REPORT INFORMATION
  Report Type: 
  Country: None (occurrence: None)
  Receive Date: 20120308
  Receipt Date: 20120227
  Transmission Date: 20120608
  Serious: Yes (Hospitalization)
  Sender: FDA-Public Use
  Company Number: FI-PFIZER INC-2012041197

PATIENT
  Age: 63 Year
  Sex: Female
  Weight: 49 kg

DRUGS (13)
  1. POLYETHYLENE GLYCOL [Concomitant]
  2. DEPOLAN [Concomitant]
  3. POTASSIUM CHLORIDE [Concomitant]
  4. LEUCOVORIN CALCIUM [Suspect]
     Indication: COLORECTAL CANCER METASTATIC
     Dosage: 400 MG, ON DAY 1 EVERY 14 DAYS
     Route: 042
     Dates: start: 20111024
  5. PREDNISOLONE [Concomitant]
  6. ACETAMINOPHEN [Concomitant]
  7. BLINDED THERAPY [Suspect]
     Indication: COLORECTAL CANCER METASTATIC
     Dosage: UNK, ON DAY 1 EVERY 14 DAYS
     Route: 042
     Dates: start: 20111024
  8. TRIPTYL [Concomitant]
  9. FLUOROURACIL [Suspect]
     Indication: COLORECTAL CANCER METASTATIC
     Dosage: 400 MG/M2, ON DAY 1 EVERY 14 DAYS
     Route: 040
     Dates: start: 20111024
  10. HALOPERIDOL [Concomitant]
  11. IRINOTECAN HCL [Suspect]
     Indication: COLORECTAL CANCER METASTATIC
     Dosage: 180 MG/M2, ON DAY 1 EVERY 14 DAYS
     Route: 042
     Dates: start: 20111024
  12. FLUOROURACIL [Suspect]
     Dosage: 2400 MG/M2, ON DAYS 1-2 EVERY 14 DAYS
     Route: 042
     Dates: start: 20111024
  13. NAPROXEN [Concomitant]

REACTIONS (2)
  - HYPOKALAEMIA [None]
  - LYMPHOEDEMA [None]
